FAERS Safety Report 9819923 (Version 1)
Quarter: 2013Q1

REPORT INFORMATION
  Report Type: Spontaneous
  Country: US (occurrence: None)
  Receive Date: 20130107
  Receipt Date: 20130107
  Transmission Date: 20140127
  Serious: Yes (Other)
  Sender: FDA-Public Use
  Company Number: PHEH2012US019326

PATIENT
  Age: 35 Year
  Sex: Female
  Weight: 59.9 kg

DRUGS (6)
  1. GILENYA [Suspect]
     Indication: MULTIPLE SCLEROSIS
     Route: 048
     Dates: start: 20121001
  2. VESICARE (SOLIFENACIN SUCCINATE) [Concomitant]
  3. SYNTHROID (LEVOTHYROXINE SODIUM) [Concomitant]
  4. NUVIGIL (ARMODAFINIL) [Concomitant]
  5. ZOLOFT (SERTRALINE HYDROCHLORIDE) [Concomitant]
  6. VITAMIN B12 (CYANOCOBALAMIN) [Concomitant]

REACTIONS (5)
  - Feeling jittery [None]
  - Blood pressure decreased [None]
  - Muscular weakness [None]
  - Heart rate increased [None]
  - Heart rate decreased [None]
